FAERS Safety Report 7307205-0 (Version None)
Quarter: 2011Q1

REPORT INFORMATION
  Report Type: 
  Country: None (occurrence: None)
  Receive Date: 20110120
  Receipt Date: 20100607
  Transmission Date: 20110831
  Serious: Yes (Other)
  Sender: FDA-Public Use
  Company Number: WAES 1006USA04597

PATIENT
  Age: 67 Year
  Sex: Female
  Weight: 58.0604 kg

DRUGS (6)
  1. TYLENOL PM [Concomitant]
  2. VANCOMYCIN [Concomitant]
  3. TYGACIL [Concomitant]
  4. INVANZ [Suspect]
     Indication: INFECTION
     Dosage: DAILY/IV
     Route: 042
     Dates: start: 20100401
  5. CUBICIN [Suspect]
     Indication: INFECTION
     Dosage: IV
     Route: 042
  6. MORPHINE [Concomitant]

REACTIONS (1)
  - WEIGHT DECREASED [None]
